FAERS Safety Report 5681606-9 (Version None)
Quarter: 2008Q1

REPORT INFORMATION
  Report Type: 
  Country: None (occurrence: None)
  Receive Date: 20080326
  Receipt Date: 20070218
  Transmission Date: 20080703
  Serious: No
  Sender: FDA-Public Use
  Company Number: US-BAYER-US-2007-006036

PATIENT
  Age: 43 Year
  Sex: Female
  Weight: 69 kg

DRUGS (3)
  1. MIRENA [Suspect]
     Route: 015
     Dates: start: 20070112
  2. LISINOPRIL [Concomitant]
     Route: 048
  3. VITAMINS [Concomitant]
     Route: 048

REACTIONS (1)
  - URTICARIA [None]
